FAERS Safety Report 6078558-9 (Version None)
Quarter: 2009Q1

REPORT INFORMATION
  Report Type: 
  Country: None (occurrence: None)
  Receive Date: 20090212
  Receipt Date: 20090203
  Transmission Date: 20090719
  Serious: Yes (Life-Threatening, Other)
  Sender: FDA-Public Use
  Company Number: 2009AL000720

PATIENT
  Age: 37 Year
  Sex: Male

DRUGS (3)
  1. CLINDAMYCIN PHOSPHATE [Suspect]
     Indication: ABSCESS
     Dosage: PO
     Route: 048
     Dates: start: 20090108
  2. WARFARIN SODIUM [Concomitant]
  3. FLUCLOXACILLIN [Concomitant]

REACTIONS (6)
  - COAGULOPATHY [None]
  - CONFUSIONAL STATE [None]
  - HAEMATURIA [None]
  - INTERNATIONAL NORMALISED RATIO INCREASED [None]
  - MELAENA [None]
  - SUBDURAL HAEMATOMA [None]
